FAERS Safety Report 4331682-0 (Version None)
Quarter: 2004Q1

REPORT INFORMATION
  Report Type: 
  Country: None (occurrence: None)
  Receive Date: 20040329
  Receipt Date: 20040319
  Transmission Date: 20041129
  Serious: Yes (Other)
  Sender: FDA-Public Use
  Company Number: UKP04000116

PATIENT
  Age: 83 Year
  Sex: Female
  Weight: 58.7 kg

DRUGS (2)
  1. ACTONEL [Suspect]
     Indication: OSTEOPOROSIS
     Dosage: 35 MG, 1/WEEK, ORAL
     Route: 048
     Dates: start: 20031101, end: 20040201
  2. CALCICHEW D3 [Concomitant]

REACTIONS (4)
  - FACE OEDEMA [None]
  - OEDEMA MOUTH [None]
  - PHARYNGOLARYNGEAL PAIN [None]
  - SPEECH DISORDER [None]
